FAERS Safety Report 6737725-9 (Version None)
Quarter: 2010Q2

REPORT INFORMATION
  Report Type: 
  Country: None (occurrence: None)
  Receive Date: 20100524
  Receipt Date: 20100512
  Transmission Date: 20101027
  Serious: Yes (Other)
  Sender: FDA-Public Use
  Company Number: PHHY2009DE55927

PATIENT
  Sex: Female
  Weight: 76 kg

DRUGS (2)
  1. ZOMETA [Suspect]
     Indication: BREAST CANCER
     Dosage: 4 MG, UNK
     Route: 042
     Dates: start: 20090702, end: 20090702
  2. TAMOXIFEN CITRATE [Concomitant]
     Indication: NEOPLASM MALIGNANT
     Dosage: 20 MG, UNK
     Route: 048

REACTIONS (2)
  - DENTAL IMPLANTATION [None]
  - OSTEONECROSIS OF JAW [None]
